FAERS Safety Report 5239544-1 (Version None)
Quarter: 2007Q1

REPORT INFORMATION
  Report Type: 
  Country: None (occurrence: None)
  Receive Date: 20070209
  Receipt Date: 20070129
  Transmission Date: 20070707
  Serious: No
  Sender: FDA-Public Use
  Company Number: 2006-149056-NL

PATIENT
  Age: 20 Year
  Sex: Female

DRUGS (9)
  1. ETONOGESTREL [Suspect]
     Indication: CONTRACEPTION
     Dosage: DF
     Dates: start: 20060801, end: 20060901
  2. SIROLIMUS [Suspect]
     Indication: IMMUNOSUPPRESSION
     Dosage: SEE IMAGE
     Dates: start: 20060101, end: 20060101
  3. SIROLIMUS [Suspect]
     Indication: IMMUNOSUPPRESSION
     Dosage: SEE IMAGE
     Dates: start: 20051206, end: 20060501
  4. SIROLIMUS [Suspect]
     Indication: IMMUNOSUPPRESSION
     Dosage: SEE IMAGE
     Dates: start: 20060501
  5. MYCOPHENOLIC ACID [Suspect]
     Indication: IMMUNOSUPPRESSION
  6. AMLODIPINE [Concomitant]
  7. PHENOXYETHYLPENICILLIN POTASSIUM [Concomitant]
  8. PREDNISOLONE [Concomitant]
  9. RANITIDINE [Concomitant]

REACTIONS (6)
  - BLOOD CREATININE INCREASED [None]
  - COMPLICATIONS OF TRANSPLANTED KIDNEY [None]
  - DRUG INTERACTION [None]
  - HAEMOLYTIC URAEMIC SYNDROME [None]
  - RENAL IMPAIRMENT [None]
  - TRANSPLANT FAILURE [None]
